FAERS Safety Report 5988801-X (Version None)
Quarter: 2008Q4

REPORT INFORMATION
  Report Type: 
  Country: None (occurrence: None)
  Receive Date: 20081208
  Receipt Date: 20081208
  Transmission Date: 20090506
  Serious: No
  Sender: FDA-Public Use
  Company Number: None

PATIENT
  Age: 58 Year
  Sex: Female
  Weight: 68.0396 kg

DRUGS (2)
  1. FOSAMAX [Suspect]
     Indication: OSTEOPOROSIS POSTMENOPAUSAL
     Dates: start: 20050101, end: 20081001
  2. ACTONEL [Suspect]
     Dosage: 1 TABLET MONTHLY PO
     Route: 048
     Dates: start: 20081015, end: 20081115

REACTIONS (3)
  - ARTHRALGIA [None]
  - HYPOAESTHESIA [None]
  - PAIN IN EXTREMITY [None]
